FAERS Safety Report 7960101-8 (Version None)
Quarter: 2011Q4

REPORT INFORMATION
  Report Type: 
  Country: None (occurrence: None)
  Receive Date: 20111206
  Receipt Date: 20111129
  Transmission Date: 20120403
  Serious: Yes (Hospitalization, Other)
  Sender: FDA-Public Use
  Company Number: BR-ABBOTT-11P-020-0703181-00

PATIENT
  Sex: Female
  Weight: 63 kg

DRUGS (3)
  1. HUMIRA [Suspect]
     Indication: CROHN'S DISEASE
     Route: 058
     Dates: start: 20091208, end: 20110101
  2. HUMIRA [Suspect]
     Route: 058
     Dates: start: 20110101
  3. AZATHIOPRINE [Concomitant]
     Indication: CROHN'S DISEASE
     Route: 048

REACTIONS (4)
  - ANAEMIA [None]
  - ILEAL FISTULA [None]
  - URINARY FISTULA [None]
  - OEDEMA PERIPHERAL [None]
